FAERS Safety Report 9612947 (Version 1)
Quarter: 2013Q4

REPORT INFORMATION
  Report Type: Spontaneous
  Country: FR (occurrence: FR)
  Receive Date: 20131010
  Receipt Date: 20131010
  Transmission Date: 20140711
  Serious: Yes (Hospitalization)
  Sender: FDA-Public Use
  Company Number: FR-SA-2013SA097840

PATIENT
  Age: 81 Year
  Sex: Female

DRUGS (12)
  1. PLAVIX [Suspect]
     Indication: PRODUCT USED FOR UNKNOWN INDICATION
     Route: 048
     Dates: start: 201304
  2. PREVISCAN [Suspect]
     Indication: PRODUCT USED FOR UNKNOWN INDICATION
     Dosage: STRENGTH: 20 MG
     Route: 048
     Dates: start: 201301, end: 20130716
  3. TAHOR [Concomitant]
     Dosage: STRENGTH: 10 MG
     Route: 048
     Dates: start: 201301
  4. TRIATEC [Concomitant]
     Route: 048
     Dates: start: 201301, end: 201305
  5. TRIATEC [Concomitant]
     Dates: start: 201305
  6. AMIODARONE [Concomitant]
     Route: 048
     Dates: start: 201301
  7. LASILIX [Concomitant]
     Dosage: STRENGTH: 40 MG
     Route: 048
     Dates: start: 201301
  8. INEXIUM [Concomitant]
     Dosage: STRENGTH: 20 MG
     Route: 048
     Dates: start: 201301
  9. ATARAX [Concomitant]
     Dosage: STRENGTH: 25
     Route: 048
     Dates: start: 201301
  10. NEBIVOLOL [Concomitant]
     Dosage: STRENGTH: 5 MG
     Route: 048
  11. ZOPLICONE [Concomitant]
     Route: 048
  12. SPIRIVA [Concomitant]
     Route: 048

REACTIONS (3)
  - Condition aggravated [Recovered/Resolved]
  - Tongue haemorrhage [Recovered/Resolved]
  - International normalised ratio increased [Recovered/Resolved]
